FAERS Safety Report 7386710-5 (Version None)
Quarter: 2011Q1

REPORT INFORMATION
  Report Type: 
  Country: None (occurrence: None)
  Receive Date: 20110331
  Receipt Date: 20110329
  Transmission Date: 20110831
  Serious: Yes (Other)
  Sender: FDA-Public Use
  Company Number: AU-PFIZER INC-2011070186

PATIENT
  Age: 47 Year
  Sex: Female

DRUGS (2)
  1. LYRICA [Suspect]
     Indication: NEURALGIA
     Dosage: 50 MG, 2X/DAY
     Dates: start: 20110311, end: 20110325
  2. CALCIUM [Concomitant]

REACTIONS (10)
  - JOINT STIFFNESS [None]
  - ABDOMINAL DISTENSION [None]
  - ABDOMINAL PAIN UPPER [None]
  - DIZZINESS [None]
  - DECREASED APPETITE [None]
  - DYSPNOEA [None]
  - MIOSIS [None]
  - OEDEMA [None]
  - WITHDRAWAL SYNDROME [None]
  - FEELING ABNORMAL [None]
